FAERS Safety Report 12416701 (Version 1)
Quarter: 2016Q2

REPORT INFORMATION
  Report Type: Spontaneous
  Country: GB (occurrence: GB)
  Receive Date: 20160530
  Receipt Date: 20160530
  Transmission Date: 20160815
  Serious: Yes (Other)
  Sender: FDA-Public Use
  Company Number: GB-JNJFOC-20150307480

PATIENT

DRUGS (1)
  1. ZYTIGA [Suspect]
     Active Substance: ABIRATERONE ACETATE
     Indication: PRODUCT USED FOR UNKNOWN INDICATION
     Route: 048

REACTIONS (24)
  - Hot flush [Unknown]
  - Skin ulcer [Unknown]
  - Lung disorder [Unknown]
  - Dyspepsia [Unknown]
  - Urinary retention [Unknown]
  - Neutropenia [Unknown]
  - Haematuria [Unknown]
  - Fatigue [Unknown]
  - Pain [Unknown]
  - Nausea [Unknown]
  - Skin discomfort [Unknown]
  - Muscle spasms [Unknown]
  - Neuropathy peripheral [Unknown]
  - Constipation [Unknown]
  - Diarrhoea [Unknown]
  - Pain in extremity [Unknown]
  - Dysuria [Unknown]
  - Mood altered [Unknown]
  - Oral pain [Unknown]
  - Liver function test abnormal [Unknown]
  - Anaemia [Unknown]
  - Back pain [Unknown]
  - Weight decreased [Recovering/Resolving]
  - Disease progression [Unknown]
